FAERS Safety Report 25434679 (Version 1)
Quarter: 2025Q2

REPORT INFORMATION
  Report Type: Spontaneous
  Country: US (occurrence: US)
  Receive Date: 20250613
  Receipt Date: 20250613
  Transmission Date: 20250716
  Serious: No
  Sender: SANOFI AVENTIS
  Company Number: US-SA-2025SA167804

PATIENT
  Age: 62 Year
  Sex: Male

DRUGS (14)
  1. DUPIXENT [Suspect]
     Active Substance: DUPILUMAB
     Indication: Dermatitis atopic
     Dosage: 300 MG, QOW
     Route: 058
     Dates: start: 20240627
  2. CITALOPRAM [Concomitant]
     Active Substance: CITALOPRAM
  3. CLOBETASOL [Concomitant]
     Active Substance: CLOBETASOL
  4. FEXOFENADINE [Concomitant]
     Active Substance: FEXOFENADINE HYDROCHLORIDE
  5. FLUCONAZOLE [Concomitant]
     Active Substance: FLUCONAZOLE
  6. HYDROXYZINE HYDROCHLORIDE [Concomitant]
     Active Substance: HYDROXYZINE HYDROCHLORIDE
  7. IVERMECTIN [Concomitant]
     Active Substance: IVERMECTIN
  8. METHYLPREDNISOLONE [Concomitant]
     Active Substance: METHYLPREDNISOLONE
  9. PANTOPRAZOLE [Concomitant]
     Active Substance: PANTOPRAZOLE
  10. PERMETHRIN [Concomitant]
     Active Substance: PERMETHRIN
  11. PREDNISONE [Concomitant]
     Active Substance: PREDNISONE
  12. TACROLIMUS [Concomitant]
     Active Substance: TACROLIMUS
  13. TRIAMCINOLONE [Concomitant]
     Active Substance: TRIAMCINOLONE
  14. FLUOCINOLONE ACETONIDE [Concomitant]
     Active Substance: FLUOCINOLONE ACETONIDE

REACTIONS (1)
  - Sleep disorder due to a general medical condition [Unknown]
